FAERS Safety Report 18174728 (Version 2)
Quarter: 2020Q3

REPORT INFORMATION
  Report Type: Spontaneous
  Country: US (occurrence: US)
  Receive Date: 20200820
  Receipt Date: 20200824
  Transmission Date: 20201103
  Serious: No
  Sender: FDA-Public Use
  Company Number: US-PFIZER INC-2020321220

PATIENT
  Age: 87 Year
  Sex: Male
  Weight: 108.86 kg

DRUGS (4)
  1. LATANOPROST. [Suspect]
     Active Substance: LATANOPROST
     Dosage: UNK
  2. TIMOLOL. [Concomitant]
     Active Substance: TIMOLOL
     Indication: INTRAOCULAR PRESSURE INCREASED
     Dosage: 1 DROP, 2X/DAY  (ONE EYE DROP IN RIGHT EYE ONLY, TWICE A DAY)
     Route: 047
     Dates: start: 2019
  3. LATANOPROST. [Suspect]
     Active Substance: LATANOPROST
     Dosage: 2 DROP, 1X/DAY(1 EYE DROP IN BOTH EYES, EVERY EVENING)
     Route: 047
     Dates: start: 202005
  4. LATANOPROST. [Suspect]
     Active Substance: LATANOPROST
     Indication: INTRAOCULAR PRESSURE INCREASED
     Dosage: 2 DROP, 1X/DAY(1 EYE DROP IN BOTH EYES, EVERY EVENING)
     Route: 047
     Dates: start: 202005

REACTIONS (2)
  - Constipation [Not Recovered/Not Resolved]
  - Body height decreased [Unknown]

NARRATIVE: CASE EVENT DATE: 202005
